FAERS Safety Report 23308640 (Version 3)
Quarter: 2024Q4

REPORT INFORMATION
  Report Type: Report from Study
  Country: US (occurrence: US)
  Receive Date: 20231218
  Receipt Date: 20241118
  Transmission Date: 20250115
  Serious: Yes (Other)
  Sender: NOVARTIS
  Company Number: US-002147023-NVSC2023US267798

PATIENT
  Age: 68 Year
  Sex: Male
  Weight: 76.82 kg

DRUGS (26)
  1. COSENTYX [Suspect]
     Active Substance: SECUKINUMAB
     Indication: Psoriasis
     Dosage: 300 MG, Q4W
     Route: 058
     Dates: start: 20230824, end: 20231010
  2. CALCITRIOL [Concomitant]
     Active Substance: CALCITRIOL
     Indication: Psoriasis
     Dosage: UNK, QD
     Route: 065
  3. ASPIRIN [Concomitant]
     Active Substance: ASPIRIN
     Indication: Product used for unknown indication
     Dosage: 81 MG, QD
     Route: 065
     Dates: start: 20150101
  4. CLOPIDOGREL [Concomitant]
     Active Substance: CLOPIDOGREL BISULFATE
     Indication: Product used for unknown indication
     Dosage: UNK
     Route: 065
  5. TRIAMCINOLONE [Concomitant]
     Active Substance: TRIAMCINOLONE
     Indication: Psoriasis
     Dosage: UNK, BID (HIGH STRENGTH /DAILY), TOPICAL CORTICOSTEROIDS
     Route: 065
  6. INSULIN GLARGINE [Concomitant]
     Active Substance: INSULIN GLARGINE
     Indication: Diabetes mellitus
     Dosage: UNK UNK, QD (100 UNITS)
     Route: 058
  7. LIPITOR [Concomitant]
     Active Substance: ATORVASTATIN CALCIUM
     Indication: Hyperlipidaemia
     Dosage: 80 MG, QD
     Route: 065
     Dates: start: 20150310
  8. OMEPRAZOLE [Concomitant]
     Active Substance: OMEPRAZOLE
     Indication: Product used for unknown indication
     Dosage: 20 MG
     Route: 048
  9. NIFEDIPINE [Concomitant]
     Active Substance: NIFEDIPINE
     Indication: Hypertension
     Dosage: 90 MG, QD
     Route: 065
     Dates: start: 20150101
  10. COREG [Concomitant]
     Active Substance: CARVEDILOL
     Indication: Product used for unknown indication
     Dosage: 6.3 MG, Q12H
     Route: 065
     Dates: end: 20241011
  11. PLAVIX [Concomitant]
     Active Substance: CLOPIDOGREL BISULFATE
     Indication: Product used for unknown indication
     Dosage: 75 MG, QD
     Route: 065
  12. FINERENONE [Concomitant]
     Active Substance: FINERENONE
     Indication: Product used for unknown indication
     Dosage: 10 MG, QD
     Route: 065
     Dates: end: 20240816
  13. GABAPENTIN [Concomitant]
     Active Substance: GABAPENTIN
     Indication: Product used for unknown indication
     Dosage: UNK
     Route: 065
  14. DICLOFENAC [Concomitant]
     Active Substance: DICLOFENAC
     Indication: Pain in extremity
     Dosage: UNK (1%, 2G) (TOPICAL)
     Route: 065
  15. DORZOLAMIDE\TIMOLOL [Concomitant]
     Active Substance: DORZOLAMIDE\TIMOLOL
     Indication: Product used for unknown indication
     Dosage: 1 DRP, BID (2%-0.5%, 1 DROP EACH EYE)
     Route: 065
  16. HYDRALAZINE [Concomitant]
     Active Substance: HYDRALAZINE HYDROCHLORIDE
     Indication: Product used for unknown indication
     Dosage: 50 MG, TID
     Route: 048
  17. INSULIN LISPRO [Concomitant]
     Active Substance: INSULIN LISPRO
     Indication: Product used for unknown indication
     Dosage: UNK (100 UNITS/ML SC)
     Route: 065
  18. ISOSORBIDE MONONITRATE [Concomitant]
     Active Substance: ISOSORBIDE MONONITRATE
     Indication: Product used for unknown indication
     Dosage: 60 MG
     Route: 048
  19. LATANOPROST [Concomitant]
     Active Substance: LATANOPROST
     Indication: Product used for unknown indication
     Dosage: 0.005 %, QD (TOPICAL)
     Route: 065
  20. LOSARTAN [Concomitant]
     Active Substance: LOSARTAN
     Indication: Product used for unknown indication
     Dosage: 50 MG
     Route: 048
  21. MINOXIDIL [Concomitant]
     Active Substance: MINOXIDIL
     Indication: Product used for unknown indication
     Dosage: 2.5 MG
     Route: 048
  22. Artificial tears [Concomitant]
     Indication: Product used for unknown indication
     Dosage: 1 DRP (4 X A DAY, 1 DROP EACH EYE)
     Route: 047
  23. CITRIC ACID, 1-STEARYL ESTER\SODIUM CITRATE [Concomitant]
     Active Substance: CITRIC ACID, 1-STEARYL ESTER\SODIUM CITRATE
     Indication: Product used for unknown indication
     Dosage: UNK
     Route: 048
  24. LOKELMA [Concomitant]
     Active Substance: SODIUM ZIRCONIUM CYCLOSILICATE
     Indication: Product used for unknown indication
     Dosage: 10 G, QD
     Route: 048
  25. LASIX [Concomitant]
     Active Substance: FUROSEMIDE
     Indication: Product used for unknown indication
     Dosage: 40 MG, PRN
     Route: 065
  26. METHOCARBAMOL [Concomitant]
     Active Substance: METHOCARBAMOL
     Indication: Muscle spasms
     Dosage: 500 MG
     Route: 048

REACTIONS (15)
  - Hypoxia [Unknown]
  - Gastrointestinal haemorrhage [Unknown]
  - Melaena [Unknown]
  - Ileal stenosis [Unknown]
  - Pulmonary oedema [Unknown]
  - Acute myocardial infarction [Recovered/Resolved]
  - Peripheral vascular disorder [Recovered/Resolved]
  - Coronary artery disease [Recovered/Resolved]
  - Acute kidney injury [Unknown]
  - Gastric ulcer [Unknown]
  - Normochromic normocytic anaemia [Unknown]
  - Dyspnoea [Unknown]
  - Chest pain [Unknown]
  - Gastritis [Unknown]
  - Faeces discoloured [Unknown]

NARRATIVE: CASE EVENT DATE: 20231101
